FAERS Safety Report 23895552 (Version 2)
Quarter: 2024Q2

REPORT INFORMATION
  Report Type: Spontaneous
  Country: BR (occurrence: BR)
  Receive Date: 20240524
  Receipt Date: 20240624
  Transmission Date: 20240716
  Serious: Yes (Other)
  Sender: FDA-Public Use
  Company Number: BR-BAYER-2024A071068

PATIENT
  Age: 43 Year
  Sex: Female

DRUGS (1)
  1. MIRENA [Suspect]
     Active Substance: LEVONORGESTREL
     Indication: Menstrual cycle management
     Dosage: 20?G/DAY
     Route: 015
     Dates: start: 20240405

REACTIONS (5)
  - Gastrointestinal haemorrhage [Not Recovered/Not Resolved]
  - Product residue present [Not Recovered/Not Resolved]
  - Menstrual clots [Not Recovered/Not Resolved]
  - Swelling [None]
  - Off label use [None]

NARRATIVE: CASE EVENT DATE: 20240405
